FAERS Safety Report 5752049-4 (Version None)
Quarter: 2008Q2

REPORT INFORMATION
  Report Type: 
  Country: None (occurrence: None)
  Receive Date: 20080529
  Receipt Date: 20080520
  Transmission Date: 20081010
  Serious: Yes (Other)
  Sender: FDA-Public Use
  Company Number: US-BAYER-200811548BCC

PATIENT
  Age: 89 Year
  Sex: Female
  Weight: 73 kg

DRUGS (4)
  1. PHILLIPS MILK OF MAGNESIA MINT TABLETS [Suspect]
     Indication: ANTACID THERAPY
     Dosage: TOTAL DAILY DOSE: 622 MG  UNIT DOSE: 311 MG
     Route: 048
     Dates: start: 20080411, end: 20080411
  2. PHILLIPS MILK OF MAGNESIA MINT TABLETS [Suspect]
     Dosage: TOTAL DAILY DOSE: 622 MG  UNIT DOSE: 311 MG
     Route: 048
     Dates: start: 20080416, end: 20080416
  3. NEXIUM [Concomitant]
  4. PEPCID [Concomitant]

REACTIONS (3)
  - ERUCTATION [None]
  - STOMACH DISCOMFORT [None]
  - TRANSIENT ISCHAEMIC ATTACK [None]
